FAERS Safety Report 20478197 (Version 1)
Quarter: 2022Q1

REPORT INFORMATION
  Report Type: Spontaneous
  Country: US (occurrence: US)
  Receive Date: 20220216
  Receipt Date: 20220216
  Transmission Date: 20220423
  Serious: Yes (Other)
  Sender: FDA-Public Use
  Company Number: US-SA-SAC20220213000044

PATIENT
  Age: 51 Year
  Sex: Male

DRUGS (3)
  1. ZANTAC [Suspect]
     Active Substance: RANITIDINE HYDROCHLORIDE
     Indication: Abdominal discomfort
     Dosage: 75 MG, QD
     Dates: start: 200901
  2. ZANTAC [Suspect]
     Active Substance: RANITIDINE HYDROCHLORIDE
     Indication: Dyspepsia
     Dosage: 150 MG, QD
  3. ZANTAC [Suspect]
     Active Substance: RANITIDINE HYDROCHLORIDE
     Indication: Hyperchlorhydria
     Dosage: 300 MG, QD
     Dates: end: 201801

REACTIONS (10)
  - Renal cancer [Unknown]
  - Prostate cancer [Unknown]
  - Blindness transient [Unknown]
  - Ligament injury [Unknown]
  - Fall [Unknown]
  - Back pain [Unknown]
  - Vertigo [Unknown]
  - Hypoaesthesia [Unknown]
  - Pollakiuria [Unknown]
  - Dizziness [Unknown]

NARRATIVE: CASE EVENT DATE: 20170101
